FAERS Safety Report 8792469 (Version 1)
Quarter: 2012Q4

REPORT INFORMATION
  Report Type: 
  Country: PL (occurrence: PL)
  Receive Date: 20120918
  Receipt Date: 20120918
  Transmission Date: 20130627
  Serious: Yes (Hospitalization)
  Sender: FDA-Public Use
  Company Number: PHHY2012PL080831

PATIENT
  Age: 48 Year
  Sex: Female

DRUGS (2)
  1. DOCETAXEL [Suspect]
     Indication: BREAST CANCER
     Dosage: 75 mg/m2, UNK
     Route: 042
     Dates: start: 20120327, end: 20120625
  2. DOXORUBICIN [Concomitant]

REACTIONS (8)
  - General physical health deterioration [Unknown]
  - Erythema multiforme [Unknown]
  - Skin lesion [Unknown]
  - Skin oedema [Unknown]
  - Skin erosion [Unknown]
  - Blister [Unknown]
  - Scab [Unknown]
  - Dyspnoea [Unknown]
